FAERS Safety Report 14201757 (Version 1)
Quarter: 2017Q4

REPORT INFORMATION
  Report Type: Spontaneous
  Country: JP (occurrence: JP)
  Receive Date: 20171117
  Receipt Date: 20171117
  Transmission Date: 20180321
  Serious: Yes (Other)
  Sender: FDA-Public Use
  Company Number: JP-BAYER-2017-217265

PATIENT
  Sex: Male

DRUGS (1)
  1. SORAFENIB (RAF KINASE INHIBITOR) [Suspect]
     Active Substance: SORAFENIB

REACTIONS (5)
  - Osteoporosis [None]
  - Hypophosphataemia [None]
  - Low turnover osteopathy [None]
  - Diabetes mellitus [None]
  - Hyperparathyroidism secondary [None]
